FAERS Safety Report 20287319 (Version 2)
Quarter: 2022Q1

REPORT INFORMATION
  Report Type: Report from Study
  Country: BR (occurrence: BR)
  Receive Date: 20220103
  Receipt Date: 20220130
  Transmission Date: 20220423
  Serious: Yes (Other)
  Sender: FDA-Public Use
  Company Number: BR-JNJFOC-20211264350

PATIENT
  Age: 44 Year
  Sex: Female
  Weight: 48 kg

DRUGS (1)
  1. INFLIXIMAB [Suspect]
     Active Substance: INFLIXIMAB
     Indication: Crohn^s disease
     Dosage: 3 AMPOULES OF 100 MG
     Route: 042
     Dates: start: 2019, end: 202001

REACTIONS (2)
  - Tuberculosis [Unknown]
  - Drug ineffective [Unknown]
